APPROVED DRUG PRODUCT: MYCOPHENOLATE MOFETIL
Active Ingredient: MYCOPHENOLATE MOFETIL
Strength: 250MG
Dosage Form/Route: CAPSULE;ORAL
Application: A091315 | Product #001
Applicant: DR REDDYS LABORATORIES LTD
Approved: Oct 27, 2011 | RLD: No | RS: No | Type: DISCN